FAERS Safety Report 5195626-4 (Version None)
Quarter: 2007Q1

REPORT INFORMATION
  Report Type: 
  Country: None (occurrence: None)
  Receive Date: 20070102
  Receipt Date: 20061218
  Transmission Date: 20070707
  Serious: Yes (Hospitalization, Other)
  Sender: FDA-Public Use
  Company Number: DE-ELI_LILLY_AND_COMPANY-DE200609003804

PATIENT
  Age: 52 Year
  Sex: Female
  Weight: 48 kg

DRUGS (9)
  1. PEMETREXED [Suspect]
     Dosage: 600 MG/M2, UNK
     Dates: start: 20060828
  2. CARBOPLATIN [Suspect]
     Dosage: 553.8 MG, UNK
     Dates: start: 20060828
  3. LAFOL [Concomitant]
     Indication: PROPHYLAXIS
     Dates: start: 20060824
  4. DEXAMETHASONE [Concomitant]
     Indication: PROPHYLAXIS
     Dates: start: 20060828, end: 20060830
  5. EMEND      /USA/ [Concomitant]
     Indication: VOMITING
     Dosage: 125 MG, UNK
     Dates: start: 20060828, end: 20060830
  6. COMBAREN [Concomitant]
     Indication: PAIN
     Dosage: UNK, 3/D
     Dates: start: 20060925
  7. IBUHEXAL /00109201/ [Concomitant]
     Indication: PAIN
     Dosage: 600 MG, 3/D
     Dates: start: 20060926
  8. VITAMIN B-12 [Concomitant]
     Indication: PROPHYLAXIS
     Dates: start: 20060818, end: 20060818
  9. PANTOPRAZOLE SODIUM [Concomitant]
     Indication: PROPHYLAXIS
     Dosage: 20 MG, UNK
     Dates: start: 20060501

REACTIONS (5)
  - FEMUR FRACTURE [None]
  - HIP ARTHROPLASTY [None]
  - METASTASES TO BONE [None]
  - RADIOTHERAPY [None]
  - THROMBOCYTOPENIA [None]
